FAERS Safety Report 24057464 (Version 2)
Quarter: 2025Q1

REPORT INFORMATION
  Report Type: Spontaneous
  Country: US (occurrence: US)
  Receive Date: 20240706
  Receipt Date: 20250328
  Transmission Date: 20250408
  Serious: Yes (Other)
  Sender: ABBVIE
  Company Number: US-ABBVIE-5827058

PATIENT
  Age: 72 Year
  Sex: Female

DRUGS (6)
  1. SYNTHROID [Suspect]
     Active Substance: LEVOTHYROXINE SODIUM
     Indication: Hypothyroidism
     Dosage: FORM STRENGTH: 25 MICROGRAM,?FREQUENCY TEXT: 2 ON SUNDAYS,1 FOR THE REST OF THE WEEK
     Route: 048
     Dates: start: 202407, end: 202410
  2. SYNTHROID [Suspect]
     Active Substance: LEVOTHYROXINE SODIUM
     Indication: Hypothyroidism
     Route: 048
     Dates: start: 202404, end: 202407
  3. SYNTHROID [Suspect]
     Active Substance: LEVOTHYROXINE SODIUM
     Indication: Hypothyroidism
     Route: 048
     Dates: start: 202401, end: 202404
  4. SYNTHROID [Suspect]
     Active Substance: LEVOTHYROXINE SODIUM
     Indication: Hypothyroidism
     Route: 048
     Dates: start: 202310, end: 202401
  5. SYNTHROID [Suspect]
     Active Substance: LEVOTHYROXINE SODIUM
     Indication: Hypothyroidism
     Dosage: FORM STRENGTH: 25 MICROGRAM,?START DATE TEXT: AT LEAST TWENTY FIVE YEARS AGO
     Route: 048
     Dates: start: 2000, end: 2023
  6. SYNTHROID [Suspect]
     Active Substance: LEVOTHYROXINE SODIUM
     Indication: Hypothyroidism
     Route: 048
     Dates: start: 202410, end: 202411

REACTIONS (26)
  - Cataract [Recovered/Resolved]
  - Hyperhidrosis [Not Recovered/Not Resolved]
  - Sinusitis [Not Recovered/Not Resolved]
  - Dyspnoea [Not Recovered/Not Resolved]
  - Cataract [Not Recovered/Not Resolved]
  - Eye irritation [Unknown]
  - Limb injury [Unknown]
  - Dehydration [Unknown]
  - Blood thyroid stimulating hormone increased [Recovered/Resolved]
  - Dizziness [Unknown]
  - Discomfort [Unknown]
  - Erythema [Not Recovered/Not Resolved]
  - Gastric dilatation [Unknown]
  - Dry mouth [Unknown]
  - Abdominal distension [Unknown]
  - Alopecia [Not Recovered/Not Resolved]
  - Paranasal sinus discomfort [Unknown]
  - Flushing [Unknown]
  - Swelling face [Unknown]
  - Haematoma [Unknown]
  - Hot flush [Not Recovered/Not Resolved]
  - Dry throat [Unknown]
  - Eye swelling [Unknown]
  - Lip swelling [Unknown]
  - Hypertension [Recovered/Resolved]
  - Mouth swelling [Unknown]

NARRATIVE: CASE EVENT DATE: 20231001
